FAERS Safety Report 7817482-5 (Version None)
Quarter: 2011Q4

REPORT INFORMATION
  Report Type: 
  Country: None (occurrence: None)
  Receive Date: 20111012
  Receipt Date: 20110930
  Transmission Date: 20120403
  Serious: Yes (Congenital Anomaly, Other)
  Sender: FDA-Public Use
  Company Number: AUR-APL-2009-01361

PATIENT
  Age: 1 Hour
  Sex: Male
  Weight: 3.37 kg

DRUGS (9)
  1. LAMIVUDINE [Suspect]
     Indication: HIV INFECTION
     Dosage: 1200 MG (1200 MG, 1 IN 1 D), TRANSPLACENTAL
     Route: 064
     Dates: start: 20040130, end: 20040601
  2. RETROVIR [Suspect]
     Indication: HIV INFECTION
     Dosage: 600 MG (600 MG, 1 IN 1 D), TRANSPLACENTAL
     Route: 064
     Dates: start: 20040601, end: 20040720
  3. TRUVADA [Suspect]
     Indication: HIV INFECTION
     Dosage: 300 MG, TRANSPLACENTAL
     Route: 064
  4. VIRACEPT [Suspect]
     Indication: HIV INFECTION
     Dosage: 2500 MG (2500 MG, 1 IN 1 D), TRANSPLACENTAL
     Route: 064
     Dates: start: 20040130, end: 20040601
  5. VIREAD [Suspect]
     Indication: HIV INFECTION
     Dosage: 300 MG (300 MG, 1 IN 1 D), TRANSPLACENTAL
     Route: 064
     Dates: start: 20040606, end: 20040910
  6. ZIDOVUDINE [Suspect]
     Indication: HIV INFECTION
     Dosage: 600 MG (600 MG, 1 IN 1 D), TRANSPLACENTAL
     Route: 064
     Dates: start: 20040601, end: 20040720
  7. INDINIVIR SULFATE [Suspect]
     Indication: PRODUCT USED FOR UNKNOWN INDICATION
     Dosage: TRANSPLACENTAL
     Route: 064
     Dates: start: 20040601, end: 20040720
  8. FOLIC ACID [Concomitant]
  9. KALETRA [Suspect]
     Indication: HIV INFECTION
     Dosage: 600 MG (600 MG, 1 IN 1 D), TRANSPLACENTAL
     Route: 064
     Dates: start: 20010601

REACTIONS (9)
  - ABDOMINAL HERNIA [None]
  - CONGENITAL ANOMALY [None]
  - GASTROSCHISIS [None]
  - MATERNAL DRUGS AFFECTING FOETUS [None]
  - ABDOMINAL DISTENSION [None]
  - CARDIAC MURMUR [None]
  - UMBILICAL HERNIA [None]
  - EXOMPHALOS [None]
  - CRYPTORCHISM [None]
